FAERS Safety Report 4450698-7 (Version None)
Quarter: 2004Q3

REPORT INFORMATION
  Report Type: 
  Country: None (occurrence: None)
  Receive Date: 20040914
  Receipt Date: 20040914
  Transmission Date: 20050211
  Serious: No
  Sender: FDA-Public Use
  Company Number: None

PATIENT
  Sex: Male
  Weight: 113.8529 kg

DRUGS (25)
  1. METFORMIN HCL [Suspect]
     Indication: DIABETES MELLITUS NON-INSULIN-DEPENDENT
     Dosage: 500 MG BID PO
     Route: 048
     Dates: start: 20030731, end: 20040408
  2. HYDROCORTISONE 1% LOTION [Concomitant]
  3. LANCET [Concomitant]
  4. PRECISION QID GLUCOSE TEST STRIP [Concomitant]
  5. METFORMIN HCL [Concomitant]
  6. HYDROXYPROPYL METH CELL OPH [Concomitant]
  7. BACITRACIN 500/POLYMX [Concomitant]
  8. CIPROFLOXACIN HCL [Concomitant]
  9. TOBRAMYCIN [Concomitant]
  10. PREDNISOLONE ACETATE [Concomitant]
  11. LAMIVUDINE [Concomitant]
  12. LISINOPRIL [Concomitant]
  13. NEVIRAPINE [Concomitant]
  14. TENOFOVIR [Concomitant]
  15. TERAZOSIN HCL [Concomitant]
  16. SULFAMETHOXAZOLE 800/TRIMETH 160 [Concomitant]
  17. LOPERAMIDE HCL [Concomitant]
  18. TEMAZEPAM [Concomitant]
  19. CLONAZEPAM [Concomitant]
  20. LAMOTRIGINE [Concomitant]
  21. QUETIAPINE FUMARATE [Concomitant]
  22. ... [Concomitant]
  23. FUROSEMIDE [Concomitant]
  24. HYDROCODONE 5/ ACETAMINOPHEN 500 [Concomitant]
  25. CODEINE S04 [Concomitant]

REACTIONS (3)
  - DEPRESSED MOOD [None]
  - MOBILITY DECREASED [None]
  - MYALGIA [None]
